FAERS Safety Report 8288146-1 (Version None)
Quarter: 2012Q2

REPORT INFORMATION
  Report Type: 
  Country: None (occurrence: None)
  Receive Date: 20120416
  Receipt Date: 20120404
  Transmission Date: 20120825
  Serious: Yes (Other)
  Sender: FDA-Public Use
  Company Number: CA-FRI-1000020256

PATIENT

DRUGS (12)
  1. CELEXA [Suspect]
     Dosage: 20 MG
     Route: 064
  2. NALOXONE [Suspect]
     Dosage: 15 MG
     Route: 064
     Dates: start: 20090330, end: 20100101
  3. FLEXERIL [Suspect]
     Dosage: 10 MG
     Route: 064
     Dates: start: 20090330, end: 20100101
  4. DICLECTIN [Suspect]
     Route: 064
     Dates: start: 20090330, end: 20100101
  5. OXYCONTIN [Suspect]
     Dosage: 30 MG
     Route: 064
     Dates: start: 20090330, end: 20100101
  6. FLEXERIL [Suspect]
     Dosage: 20 MG
     Route: 064
     Dates: start: 20090330, end: 20100101
  7. LIDOCAINE [Suspect]
     Route: 064
     Dates: start: 20090330, end: 20100101
  8. TRAMADOL HYDROCHLORIDE/ACETAMINOPHEN [Suspect]
     Route: 064
  9. CELEXA [Suspect]
     Dosage: 40 MG
     Route: 064
  10. CLOMID [Suspect]
     Route: 064
     Dates: start: 20090330, end: 20100101
  11. IMOVANE [Suspect]
     Dosage: 7.5 MG
     Route: 064
     Dates: start: 20090330, end: 20100101
  12. NALOXONE [Suspect]
     Dosage: 30 MG
     Dates: start: 20090330, end: 20100101

REACTIONS (1)
  - DRUG WITHDRAWAL SYNDROME NEONATAL [None]
